FAERS Safety Report 7373181-8 (Version None)
Quarter: 2011Q1

REPORT INFORMATION
  Report Type: 
  Country: None (occurrence: None)
  Receive Date: 20110324
  Receipt Date: 20110323
  Transmission Date: 20110831
  Serious: Yes (Other)
  Sender: FDA-Public Use
  Company Number: IL-PFIZER INC-2011056456

PATIENT
  Age: 60 Year
  Sex: Male

DRUGS (2)
  1. SUTENT [Suspect]
     Indication: PANCREATIC NEUROENDOCRINE TUMOUR
     Dosage: 50 MG, CYCLE 3, 4 WEEKS ON, 2 WEEKS OFF
     Route: 048
  2. SIROLIMUS [Concomitant]

REACTIONS (1)
  - RETINAL DETACHMENT [None]
